FAERS Safety Report 12390255 (Version 1)
Quarter: 2016Q2

REPORT INFORMATION
  Report Type: Spontaneous
  Country: US (occurrence: US)
  Receive Date: 20160520
  Receipt Date: 20160520
  Transmission Date: 20160815
  Serious: Yes (Hospitalization, Other)
  Sender: FDA-Public Use
  Company Number: US-ALKERMES INC.-ALK-2016-001182

PATIENT
  Age: 47 Year
  Sex: Female
  Weight: 47.62 kg

DRUGS (1)
  1. VIVITROL [Suspect]
     Active Substance: NALTREXONE
     Indication: ALCOHOLISM
     Dosage: 380 MG, QMO
     Route: 030
     Dates: start: 2016

REACTIONS (9)
  - Dysuria [Unknown]
  - Thyroid disorder [Unknown]
  - Cirrhosis alcoholic [Unknown]
  - Hypokalaemia [Unknown]
  - Thrombocytopenia [Unknown]
  - Peripheral swelling [Not Recovered/Not Resolved]
  - Ascites [Unknown]
  - Abdominal distension [Not Recovered/Not Resolved]
  - Constipation [Unknown]

NARRATIVE: CASE EVENT DATE: 20160422
